FAERS Safety Report 7942026-7 (Version None)
Quarter: 2011Q4

REPORT INFORMATION
  Report Type: 
  Country: None (occurrence: None)
  Receive Date: 20111128
  Receipt Date: 20111115
  Transmission Date: 20120403
  Serious: Yes (Other)
  Sender: FDA-Public Use
  Company Number: GB-TEVA-302281ISR

PATIENT
  Age: 81 Year
  Sex: Female
  Weight: 55.3 kg

DRUGS (10)
  1. MIRTAZAPINE [Interacting]
     Indication: MAJOR DEPRESSION
     Dosage: UNK, UNK
     Route: 048
     Dates: start: 20100920
  2. LORAZEPAM [Concomitant]
     Indication: MAJOR DEPRESSION
     Dosage: 4 MG, QD
     Route: 048
     Dates: start: 20101014
  3. VALDOXAN [Suspect]
     Indication: MAJOR DEPRESSION
     Dosage: 25 MG, SINGLE
     Route: 048
     Dates: start: 20110730, end: 20110730
  4. LEVOTHYROXINE SODIUM [Concomitant]
     Indication: HYPOTHYROIDISM
     Dosage: 75 MILLIGRAM;
  5. RAMIPRIL [Concomitant]
     Indication: ESSENTIAL HYPERTENSION
     Dosage: 2-5- MG, QD
     Route: 048
  6. OLANZAPINE [Interacting]
     Indication: MAJOR DEPRESSION
     Dosage: UNK, UNK
     Route: 048
     Dates: start: 20110413, end: 20110731
  7. SIMVASTATIN [Concomitant]
     Indication: HYPERLIPIDAEMIA
     Dosage: 40 MG, QD
     Route: 048
  8. ZOLPIDEM [Concomitant]
     Indication: INSOMNIA
     Dosage: 10 MG, QD
     Route: 048
     Dates: start: 20101014
  9. ASPIRIN [Concomitant]
     Indication: MYOCARDIAL INFARCTION
     Dosage: 75 MG, QD
     Route: 048
  10. LEVOTHYROXINE SODIUM [Concomitant]
     Indication: HYPOTHYROIDISM
     Dosage: 75 MICROGRAM;
     Route: 048

REACTIONS (4)
  - AMNESIA [None]
  - DRUG INTERACTION [None]
  - SYNCOPE [None]
  - HYPOTENSION [None]
